FAERS Safety Report 6646809-5 (Version None)
Quarter: 2010Q1

REPORT INFORMATION
  Report Type: 
  Country: None (occurrence: None)
  Receive Date: 20100317
  Receipt Date: 20100309
  Transmission Date: 20100710
  Serious: Yes (Life-Threatening, Hospitalization, Other)
  Sender: FDA-Public Use
  Company Number: 008451

PATIENT
  Sex: Male
  Weight: 167 kg

DRUGS (17)
  1. ROTIGOTINE [Suspect]
     Indication: PARKINSON'S DISEASE
     Dosage: (6 MG QD  TRANSDERMAL), (4 MG QD TRANSDERMAL), (2 MG QD TRANSDERMAL)
     Route: 062
     Dates: start: 20090606, end: 20100304
  2. ROTIGOTINE [Suspect]
     Indication: PARKINSON'S DISEASE
     Dosage: (6 MG QD  TRANSDERMAL), (4 MG QD TRANSDERMAL), (2 MG QD TRANSDERMAL)
     Route: 062
     Dates: start: 20100305, end: 20100306
  3. ROTIGOTINE [Suspect]
     Indication: PARKINSON'S DISEASE
     Dosage: (6 MG QD  TRANSDERMAL), (4 MG QD TRANSDERMAL), (2 MG QD TRANSDERMAL)
     Route: 062
     Dates: start: 20100307, end: 20100308
  4. SINEMET [Concomitant]
  5. ACCUPRIL [Concomitant]
  6. ALLERGY RELIEF /00884302/ [Concomitant]
  7. AVODART [Concomitant]
  8. LIPITOR [Concomitant]
  9. VITAMIN B /90046501/ [Concomitant]
  10. VITAMIN D [Concomitant]
  11. VITAMIN E /05494901/ [Concomitant]
  12. BENEFIBER /01648102/ [Concomitant]
  13. ROTIGOTINE [Concomitant]
  14. CALCIUM [Concomitant]
  15. DEXAMETHA+ONE W/TOBRAMYCIN [Concomitant]
  16. VICODIN [Concomitant]
  17. ZOLOFT [Concomitant]

REACTIONS (6)
  - CARDIAC MURMUR [None]
  - DIZZINESS [None]
  - MITRAL VALVE INCOMPETENCE [None]
  - MITRAL VALVE PROLAPSE [None]
  - SINUS ARRHYTHMIA [None]
  - SYNCOPE [None]
